FAERS Safety Report 8057452-8 (Version None)
Quarter: 2012Q1

REPORT INFORMATION
  Report Type: 
  Country: None (occurrence: None)
  Receive Date: 20120119
  Receipt Date: 20120110
  Transmission Date: 20120608
  Serious: Yes (Death)
  Sender: FDA-Public Use
  Company Number: DK-ROCHE-769649

PATIENT
  Sex: Female
  Weight: 59 kg

DRUGS (11)
  1. ACTEMRA [Suspect]
     Route: 065
     Dates: start: 20101221, end: 20101221
  2. ACTEMRA [Suspect]
     Indication: RHEUMATOID ARTHRITIS
     Route: 065
  3. ENBREL [Suspect]
     Indication: RHEUMATOID ARTHRITIS
     Dosage: FREQUENCY: EVERY WEEK
     Route: 065
     Dates: start: 20080709, end: 20081013
  4. ACTEMRA [Suspect]
     Route: 065
  5. ACTEMRA [Suspect]
     Route: 065
  6. ACTEMRA [Suspect]
     Route: 065
  7. ACTEMRA [Suspect]
  8. ACTEMRA [Suspect]
  9. ACTEMRA [Suspect]
     Route: 065
  10. REMICADE [Suspect]
     Indication: RHEUMATOID ARTHRITIS
     Dosage: FREQUENCY: WEEK 0,2 6,+8
     Route: 065
     Dates: start: 20081014, end: 20081127
  11. ACTEMRA [Suspect]
     Route: 065

REACTIONS (1)
  - LUNG NEOPLASM MALIGNANT [None]
